FAERS Safety Report 6041332-3 (Version None)
Quarter: 2009Q1

REPORT INFORMATION
  Report Type: 
  Country: None (occurrence: None)
  Receive Date: 20090116
  Receipt Date: 20081003
  Transmission Date: 20090719
  Serious: No
  Sender: FDA-Public Use
  Company Number: US-BRISTOL-MYERS SQUIBB COMPANY-14357024

PATIENT
  Age: 15 Year
  Sex: Female
  Weight: 95 kg

DRUGS (7)
  1. ABILIFY [Suspect]
     Indication: SENSORY DISTURBANCE
     Dosage: IN 2006 DECREASED TO 5MG
     Dates: start: 20030101
  2. VITAMIN TAB [Concomitant]
  3. DAYTRANA [Concomitant]
  4. VITAMIN B6 [Concomitant]
  5. VITAMIN E [Concomitant]
  6. PROZAC [Concomitant]
  7. LEXAPRO [Concomitant]

REACTIONS (2)
  - FALL [None]
  - RIB FRACTURE [None]
